FAERS Safety Report 14285546 (Version 3)
Quarter: 2020Q2

REPORT INFORMATION
  Report Type: Spontaneous
  Country: US (occurrence: US)
  Receive Date: 20171214
  Receipt Date: 20200529
  Transmission Date: 20200713
  Serious: Yes (Other)
  Sender: FDA-Public Use
  Company Number: US-PFIZER INC-2017533033

PATIENT
  Age: 66 Year
  Sex: Female
  Weight: 49.89 kg

DRUGS (1)
  1. IBRANCE [Suspect]
     Active Substance: PALBOCICLIB
     Dosage: 100 MG, CYCLIC (3 WEEKS ON)

REACTIONS (3)
  - Nasopharyngitis [Unknown]
  - Swelling face [Unknown]
  - Malaise [Unknown]
